FAERS Safety Report 17546675 (Version 1)
Quarter: 2020Q1

REPORT INFORMATION
  Report Type: Spontaneous
  Country: US (occurrence: US)
  Receive Date: 20200316
  Receipt Date: 20200316
  Transmission Date: 20200409
  Serious: No
  Sender: FDA-Public Use
  Company Number: US-SA-2020SA066277

PATIENT
  Age: 76 Year
  Sex: Female

DRUGS (11)
  1. DUPIXENT [Suspect]
     Active Substance: DUPILUMAB
     Indication: DERMATITIS ATOPIC
     Dosage: 300 MG, QOW
     Route: 058
     Dates: start: 20180628
  2. ENOXAPARIN [Concomitant]
     Active Substance: ENOXAPARIN
  3. MUPIROCIN. [Concomitant]
     Active Substance: MUPIROCIN
  4. CEFDINIR. [Concomitant]
     Active Substance: CEFDINIR
  5. TRAMADOL. [Concomitant]
     Active Substance: TRAMADOL
  6. OXYCODONE [Concomitant]
     Active Substance: OXYCODONE
  7. DOK [Concomitant]
     Active Substance: DOCUSATE SODIUM
  8. GABAPENTIN. [Concomitant]
     Active Substance: GABAPENTIN
  9. FUROSEMIDE. [Concomitant]
     Active Substance: FUROSEMIDE
  10. ALPRAZOLAM. [Concomitant]
     Active Substance: ALPRAZOLAM
  11. ATORVASTATIN [Concomitant]
     Active Substance: ATORVASTATIN

REACTIONS (2)
  - Pruritus [Not Recovered/Not Resolved]
  - Product dose omission [Not Recovered/Not Resolved]

NARRATIVE: CASE EVENT DATE: 202001
